FAERS Safety Report 5714680-1 (Version None)
Quarter: 2008Q2

REPORT INFORMATION
  Report Type: 
  Country: None (occurrence: None)
  Receive Date: 20080416
  Receipt Date: 20080311
  Transmission Date: 20081010
  Serious: No
  Sender: FDA-Public Use
  Company Number: DL2008106

PATIENT
  Age: 18 Year
  Sex: Female

DRUGS (4)
  1. MIFEPRISTONE TABLETS, 200 MG (DANCO LABS) [Suspect]
     Indication: ABORTION INDUCED
     Dosage: 200 MG, ORAL
     Route: 048
     Dates: start: 20080131
  2. MISOPROSTOL [Suspect]
     Dosage: 800 MCG, BUCCAL
     Route: 002
     Dates: start: 20080201
  3. MISOPROSTOL [Suspect]
     Dosage: 800 MCG, BUCCAL
     Route: 002
     Dates: start: 20080202
  4. PATIENT RECEIVED PROPHYLACTIC ANTIBIOTICS [Concomitant]

REACTIONS (2)
  - DIZZINESS [None]
  - HAEMORRHAGE [None]
